FAERS Safety Report 18558945 (Version 1)
Quarter: 2020Q4

REPORT INFORMATION
  Report Type: Spontaneous
  Country: US (occurrence: US)
  Receive Date: 20201125
  Receipt Date: 20201125
  Transmission Date: 20210114
  Serious: Yes (Other)
  Sender: FDA-Public Use
  Company Number: None

PATIENT
  Age: 23 Year
  Sex: Female
  Weight: 56.25 kg

DRUGS (9)
  1. BOTOX [Concomitant]
     Active Substance: ONABOTULINUMTOXINA
  2. VITAMIN B12 [Concomitant]
     Active Substance: CYANOCOBALAMIN
  3. AHCC [Concomitant]
  4. BETA GLUCAN [Concomitant]
     Active Substance: BETA GLUCAN
  5. ZINC. [Concomitant]
     Active Substance: ZINC
  6. EMGALITY [Suspect]
     Active Substance: GALCANEZUMAB-GNLM
     Indication: MIGRAINE
     Dates: start: 20181130, end: 20200201
  7. PROBIOTICS [Concomitant]
     Active Substance: PROBIOTICS NOS
  8. ASHWAGANDHA [Concomitant]
     Active Substance: HERBALS
  9. ASTRALAGUS [Concomitant]

REACTIONS (2)
  - Alopecia [None]
  - Weight increased [None]

NARRATIVE: CASE EVENT DATE: 20190301
